FAERS Safety Report 10386547 (Version 1)
Quarter: 2014Q3

REPORT INFORMATION
  Report Type: Spontaneous
  Country: US (occurrence: None)
  Receive Date: 20140814
  Receipt Date: 20140814
  Transmission Date: 20150326
  Serious: Yes (Hospitalization)
  Sender: FDA-Public Use
  Company Number: None

PATIENT
  Age: 39 Year
  Sex: Male
  Weight: 74.84 kg

DRUGS (13)
  1. SULFAMETHOXAZOLE-TRIMETHOPRIM (BACTRIM DS) [Concomitant]
  2. RITUXIMAB 1000MG GENENTECH [Suspect]
     Active Substance: RITUXIMAB
     Indication: GRANULOMATOSIS WITH POLYANGIITIS
     Dosage: 1000MG?ONE DOSE  X 2?INTRAVENOUS
     Route: 042
     Dates: start: 20130805, end: 20130819
  3. VITAMIN B12 [Concomitant]
     Active Substance: CYANOCOBALAMIN
  4. BACITRACIN. [Concomitant]
     Active Substance: BACITRACIN
  5. AMLODIPINE (NORVASC) [Concomitant]
  6. ASPIRIN. [Concomitant]
     Active Substance: ASPIRIN
  7. PREDNISONE. [Concomitant]
     Active Substance: PREDNISONE
  8. CYANOCOBALAMIN. [Concomitant]
     Active Substance: CYANOCOBALAMIN
  9. CALCIUM-CHOLESCALCIFEROL, D3, (CALCIUM 500 + D) [Concomitant]
  10. VALSARTAN (DIOVAN) [Concomitant]
  11. THERAPEUTIC MULTIVITAMIN [Concomitant]
  12. RITUXIMAB 1000MG GENENTECH [Suspect]
     Active Substance: RITUXIMAB
     Indication: VASCULITIS
     Dosage: 1000MG?ONE DOSE  X 2?INTRAVENOUS
     Route: 042
     Dates: start: 20130805, end: 20130819
  13. PANTOPRAXOLE SODIUM (PROTONIX) [Concomitant]

REACTIONS (1)
  - Peroneal nerve palsy [None]

NARRATIVE: CASE EVENT DATE: 20131017
